FAERS Safety Report 8057244-X (Version None)
Quarter: 2012Q1

REPORT INFORMATION
  Report Type: 
  Country: None (occurrence: None)
  Receive Date: 20120119
  Receipt Date: 20120116
  Transmission Date: 20120608
  Serious: Yes (Other)
  Sender: FDA-Public Use
  Company Number: PHEH2012US001637

PATIENT
  Sex: Female
  Weight: 166 kg

DRUGS (1)
  1. RECLAST [Suspect]
     Indication: OSTEOPOROSIS
     Dosage: 5 MG PER 100 ML, ONCE YEARLY
     Route: 042
     Dates: start: 20111101

REACTIONS (2)
  - VISUAL ACUITY REDUCED [None]
  - EYE INFECTION [None]
